FAERS Safety Report 6436547 (Version 30)
Quarter: 2016Q2

REPORT INFORMATION
  Report Type: Report from Study
  Country: CA (occurrence: CA)
  Receive Date: 20071005
  Receipt Date: 20160415
  Transmission Date: 20160815
  Serious: No
  Sender: FDA-Public Use
  Company Number: CA-ROCHE-GNE248174

PATIENT
  Age: 51 Year
  Sex: Male

DRUGS (9)
  1. OMALIZUMAB [Suspect]
     Active Substance: OMALIZUMAB
     Route: 058
     Dates: start: 20130611
  2. OMALIZUMAB [Suspect]
     Active Substance: OMALIZUMAB
     Route: 058
     Dates: start: 20151201
  3. OMALIZUMAB [Suspect]
     Active Substance: OMALIZUMAB
     Route: 058
     Dates: start: 20160406
  4. OMALIZUMAB [Suspect]
     Active Substance: OMALIZUMAB
     Route: 058
     Dates: start: 20130515
  5. OMALIZUMAB [Suspect]
     Active Substance: OMALIZUMAB
     Dosage: SHOT
     Route: 058
     Dates: start: 20130528
  6. OMALIZUMAB [Suspect]
     Active Substance: OMALIZUMAB
     Route: 065
     Dates: start: 20130722
  7. OMALIZUMAB [Suspect]
     Active Substance: OMALIZUMAB
     Route: 065
     Dates: start: 20150826
  8. OMALIZUMAB [Suspect]
     Active Substance: OMALIZUMAB
     Indication: ASTHMA
     Route: 058
     Dates: start: 20070504
  9. OMALIZUMAB [Suspect]
     Active Substance: OMALIZUMAB
     Route: 058
     Dates: start: 20151021

REACTIONS (24)
  - Musculoskeletal stiffness [Unknown]
  - Lower respiratory tract infection [Unknown]
  - Chronic sinusitis [Not Recovered/Not Resolved]
  - Nasal polyps [Not Recovered/Not Resolved]
  - Orthostatic hypotension [Unknown]
  - Allergy to fermented products [Unknown]
  - Dysphonia [Unknown]
  - Wheezing [Unknown]
  - Fatigue [Unknown]
  - Upper-airway cough syndrome [Not Recovered/Not Resolved]
  - Nasopharyngitis [Unknown]
  - Bronchitis [Unknown]
  - Rhonchi [Unknown]
  - Respiratory disorder [Unknown]
  - Bronchial secretion retention [Unknown]
  - Ageusia [Unknown]
  - Stress [Unknown]
  - Body temperature decreased [Unknown]
  - Nasal obstruction [Unknown]
  - Cough [Unknown]
  - Oropharyngeal pain [Unknown]
  - Sinusitis [Recovered/Resolved]
  - Anxiety [Unknown]
  - Influenza [Unknown]

NARRATIVE: CASE EVENT DATE: 201108
